FAERS Safety Report 16814979 (Version 1)
Quarter: 2019Q3

REPORT INFORMATION
  Report Type: Spontaneous
  Country: US (occurrence: US)
  Receive Date: 20190916
  Receipt Date: 20190916
  Transmission Date: 20191005
  Serious: Yes (Disabling)
  Sender: FDA-Public Use
  Company Number: None

PATIENT
  Age: 30 Year
  Sex: Male
  Weight: 72 kg

DRUGS (2)
  1. FINASTERIDE 1 MG TABLET GENERIC FOR PROPECIA [Suspect]
     Active Substance: FINASTERIDE
     Indication: ALOPECIA
     Dosage: ?          QUANTITY:1 TABLET(S);?
     Route: 048
     Dates: start: 20180410, end: 20190610
  2. FINASTERIDE 1 MG TABLET GENERIC FOR PROPECIA [Suspect]
     Active Substance: FINASTERIDE
     Indication: PROPHYLAXIS
     Dosage: ?          QUANTITY:1 TABLET(S);?
     Route: 048
     Dates: start: 20180410, end: 20190610

REACTIONS (5)
  - Muscle twitching [None]
  - Fatigue [None]
  - Depression [None]
  - Loss of libido [None]
  - Anxiety [None]

NARRATIVE: CASE EVENT DATE: 20190709
